FAERS Safety Report 23252111 (Version 4)
Quarter: 2025Q1

REPORT INFORMATION
  Report Type: Spontaneous
  Country: US (occurrence: US)
  Receive Date: 20231201
  Receipt Date: 20250113
  Transmission Date: 20250408
  Serious: No
  Sender: SANOFI AVENTIS
  Company Number: US-SA-SAC20231128000450

PATIENT
  Age: 53 Year
  Sex: Female

DRUGS (14)
  1. DUPIXENT [Suspect]
     Active Substance: DUPILUMAB
     Indication: Dermatitis atopic
     Dosage: 300 MG, QOW
     Route: 058
     Dates: start: 20230912
  2. ESTRADIOL [Concomitant]
     Active Substance: ESTRADIOL
  3. FLUOCINONIDE [Concomitant]
     Active Substance: FLUOCINONIDE
  4. TRAZODONE [Concomitant]
     Active Substance: TRAZODONE HYDROCHLORIDE
  5. HYDROCORTISONE [Concomitant]
     Active Substance: HYDROCORTISONE
  6. PRILOSEC [Concomitant]
     Active Substance: OMEPRAZOLE MAGNESIUM
  7. FLUTICASONE [Concomitant]
     Active Substance: FLUTICASONE
  8. ESTRADIOL [Concomitant]
     Active Substance: ESTRADIOL
  9. ESTRADIOL [Concomitant]
     Active Substance: ESTRADIOL
  10. ISOVUE 370 [Concomitant]
     Active Substance: IOPAMIDOL
  11. PREDNISONE [Concomitant]
     Active Substance: PREDNISONE
  12. PRILOSEC OTC [Concomitant]
     Active Substance: OMEPRAZOLE MAGNESIUM
  13. SODIUM CHLORIDE [Concomitant]
     Active Substance: SODIUM CHLORIDE
  14. FLUOCINONIDE [Concomitant]
     Active Substance: FLUOCINONIDE

REACTIONS (5)
  - Sleep disorder due to a general medical condition [Not Recovered/Not Resolved]
  - Eye irritation [Not Recovered/Not Resolved]
  - Dry eye [Not Recovered/Not Resolved]
  - Dermatitis atopic [Not Recovered/Not Resolved]
  - Drug ineffective [Unknown]

NARRATIVE: CASE EVENT DATE: 20230101
